FAERS Safety Report 8171348-2 (Version None)
Quarter: 2012Q1

REPORT INFORMATION
  Report Type: 
  Country: None (occurrence: None)
  Receive Date: 20120104
  Receipt Date: 20110926
  Transmission Date: 20120608
  Serious: No
  Sender: FDA-Public Use
  Company Number: 2011HGS-002584

PATIENT
  Age: 41 Year
  Sex: Female
  Weight: 88.4514 kg

DRUGS (9)
  1. AMBIEN [Concomitant]
  2. FOLIC ACID [Concomitant]
  3. CALCIUM WITH VITAMIN D AND MAGNESIUM SUPPLEMENT (CALMAG D (MAGNESIUM, [Concomitant]
  4. LOSARTAN POTASSIUM [Concomitant]
  5. BENLYSTA [Suspect]
     Indication: SYSTEMIC LUPUS ERYTHEMATOSUS
     Dosage: 1 IN 2 WK, INTRAVENOUS DRIP
     Route: 041
     Dates: start: 20110606
  6. VICODIN (VICODIN PARACETAMOL, HYDROCODONE BITARTRATE) [Concomitant]
  7. METHOTREXATE [Concomitant]
  8. VITAMIN A [Concomitant]
  9. LOVAZA [Concomitant]

REACTIONS (1)
  - MUSCLE SPASMS [None]
